FAERS Safety Report 4920609-6 (Version None)
Quarter: 2006Q1

REPORT INFORMATION
  Report Type: 
  Country: None (occurrence: None)
  Receive Date: 20060223
  Receipt Date: 20060206
  Transmission Date: 20060701
  Serious: Yes (Life-Threatening, Hospitalization)
  Sender: FDA-Public Use
  Company Number: JP-ROCHE-435057

PATIENT
  Age: 62 Year
  Sex: Female

DRUGS (11)
  1. PANALDINE [Suspect]
     Indication: CEREBRAL INFARCTION
     Route: 048
     Dates: start: 20051101, end: 20051201
  2. ACECOL [Concomitant]
     Route: 048
  3. CARDENALIN [Concomitant]
     Route: 048
     Dates: start: 20051119, end: 20051201
  4. ADALAT [Concomitant]
     Route: 048
     Dates: start: 20051101, end: 20051201
  5. DIOVAN [Concomitant]
     Route: 048
     Dates: start: 20051006
  6. CEROCRAL [Concomitant]
     Dosage: DOSE REPORTED AS 2
     Route: 048
     Dates: start: 20051006, end: 20051201
  7. IPRIFLAVONE [Concomitant]
     Dosage: TRADE NAME REPORTED AS: OLICOCK.
     Route: 048
     Dates: start: 19920615, end: 20051201
  8. ALFACALCIDOL [Concomitant]
     Dosage: REPORTED AS CALCITAMIN
     Route: 048
     Dates: start: 19920615, end: 20051201
  9. BETAHISTINE [Concomitant]
     Dosage: REPORTED AS MANIETOL
     Route: 048
     Dates: start: 20050930, end: 20051201
  10. FERROUS CITRATE [Concomitant]
     Dosage: REPORTED AS FENELMIN
     Route: 048
     Dates: start: 20051115, end: 20051201
  11. HI-Z [Concomitant]
     Route: 048

REACTIONS (14)
  - ABDOMINAL PAIN UPPER [None]
  - BILIRUBINURIA [None]
  - BLOOD PRESSURE DECREASED [None]
  - BLOOD SODIUM DECREASED [None]
  - DYSURIA [None]
  - HALLUCINATION [None]
  - HALLUCINATIONS, MIXED [None]
  - HEART RATE INCREASED [None]
  - HYPOAESTHESIA [None]
  - ILEUS [None]
  - INSOMNIA [None]
  - PORPHYRIA ACUTE [None]
  - RESPIRATORY FAILURE [None]
  - STOMACH DISCOMFORT [None]
